FAERS Safety Report 22621085 (Version 14)
Quarter: 2024Q2

REPORT INFORMATION
  Report Type: Spontaneous
  Country: US (occurrence: US)
  Receive Date: 20230620
  Receipt Date: 20240614
  Transmission Date: 20240715
  Serious: Yes (Other)
  Sender: FDA-Public Use
  Company Number: US-PFIZER INC-PV202300106251

PATIENT
  Age: 73 Year
  Sex: Female

DRUGS (2)
  1. XELJANZ XR [Suspect]
     Active Substance: TOFACITINIB CITRATE
     Indication: Arthritis
     Dosage: 11 MG
  2. XELJANZ XR [Suspect]
     Active Substance: TOFACITINIB CITRATE
     Indication: Rheumatoid arthritis

REACTIONS (11)
  - Diabetes mellitus [Unknown]
  - Joint injury [Unknown]
  - Lower limb fracture [Unknown]
  - Ligament sprain [Unknown]
  - Rheumatoid arthritis [Not Recovered/Not Resolved]
  - Syncope [Unknown]
  - Illness [Not Recovered/Not Resolved]
  - Visual impairment [Unknown]
  - Diarrhoea [Unknown]
  - Fall [Unknown]
  - Pain [Not Recovered/Not Resolved]

NARRATIVE: CASE EVENT DATE: 20240223
